FAERS Safety Report 23668001 (Version 1)
Quarter: 2024Q1

REPORT INFORMATION
  Report Type: Report from Study
  Country: US (occurrence: US)
  Receive Date: 20240325
  Receipt Date: 20240325
  Transmission Date: 20240410
  Serious: Yes (Hospitalization)
  Sender: FDA-Public Use
  Company Number: US-ORPHANEU-2024001988

PATIENT

DRUGS (21)
  1. CARBAGLU [Suspect]
     Active Substance: CARGLUMIC ACID
     Indication: Propionic acidaemia
     Dosage: UNK
     Route: 048
  2. CARBAGLU [Suspect]
     Active Substance: CARGLUMIC ACID
     Dosage: 3 TABLETS (600 MG TOTAL) BY MOUTH 2 TIMES DAILY AND 3.5 TABLETS (700 MG TOTAL) 2 TIMES DAILY, QID
     Route: 048
     Dates: start: 20240308, end: 20240313
  3. CARBAGLU [Suspect]
     Active Substance: CARGLUMIC ACID
     Dosage: DOSE INCREASED
     Route: 048
     Dates: start: 20240314
  4. DIASTAT [Concomitant]
     Active Substance: DIAZEPAM
     Indication: Seizure
     Dosage: 7.5 MILLIGRAM, PRN, 10 MG/2 ML GEL
     Route: 054
     Dates: start: 20221209
  5. HYDROCORTISONE [Concomitant]
     Active Substance: HYDROCORTISONE
     Indication: Pruritus
     Dosage: 1PERCENT OINTMENT, APPLY TOPICALLY 2 TIMES DAILY
     Route: 061
     Dates: start: 20220512
  6. PROPIMEX-1 [Concomitant]
     Indication: Propionic acidaemia
     Dosage: QM (PER MONTH), 5-480 G-KCAL/100 G POWDER (1 CASE OF PROPIMEX 1 PER MONTH)
     Dates: start: 20220922
  7. PROPIMEX-1 [Concomitant]
     Dosage: 5-480 G-KCAL/100 G POWDER, AS NEEDED DAILY)
     Dates: start: 20240103
  8. PREVACID SOLUTAB [Concomitant]
     Active Substance: LANSOPRAZOLE
     Indication: Product used for unknown indication
     Dosage: 7.5 MILLIGRAM DAILY (0.5 TABLETS) (15 MG DISINTEGRATING TABLET)
     Route: 048
     Dates: start: 20231116
  9. KEPPRA [Concomitant]
     Active Substance: LEVETIRACETAM
     Indication: Product used for unknown indication
     Dosage: 300 MILLIGRAM (3 ML)), Q12H, (100 MG/ML SOLUTION )
     Route: 048
     Dates: start: 20240102
  10. CARNITOR [Concomitant]
     Active Substance: LEVOCARNITINE
     Indication: Product used for unknown indication
     Dosage: 600 MILLIGRAM, TID ( 6 ML), (100 MG/ML SOLUTION )
     Route: 048
     Dates: start: 20240125
  11. COENZYME Q10 [Concomitant]
     Active Substance: DIETARY SUPPLEMENT\UBIDECARENONE
     Indication: Product used for unknown indication
     Dosage: 100 MILLIGRAM (1 ML) DAILY, (100 MG/ML LIQUID )
     Route: 048
     Dates: start: 20220903
  12. MINERAL OIL [Concomitant]
     Active Substance: MINERAL OIL
     Indication: Product used for unknown indication
     Dosage: PRN (AS NEEDED), SOLUTION
     Route: 061
     Dates: start: 20221202
  13. AQUAPHOR [Concomitant]
     Active Substance: PETROLATUM
     Indication: Product used for unknown indication
     Dosage: PRN (AS NEEDED), 41 PERCENT OINTMENT
     Route: 061
     Dates: start: 20220615
  14. MIRALAX [Concomitant]
     Active Substance: POLYETHYLENE GLYCOL 3350
     Indication: Product used for unknown indication
     Dosage: 8.5 GRAMBY MOUTH (17 GRAM POWDER)
     Route: 048
  15. MIRALAX [Concomitant]
     Active Substance: POLYETHYLENE GLYCOL 3350
     Dosage: 8 GRAMS BY MOUTH (17 GRAM POWDER)
     Route: 048
  16. VITAMIN B6 [Concomitant]
     Active Substance: PYRIDOXINE HYDROCHLORIDE
     Indication: Product used for unknown indication
     Dosage: 50 MILLIGRAM (2 ML), BY MOUTH, (25 MG/ML SUSPENSION)
     Route: 048
     Dates: start: 20220929
  17. TRIPLE PASTE [Concomitant]
     Indication: Rash
     Dosage: PRN (AS NEEDED)
     Route: 061
     Dates: start: 20220615
  18. ILEX [Concomitant]
     Indication: Rash
     Dosage: PRN (AS NEEDED), SKIN PROTECTIVE PASTE
     Route: 061
     Dates: start: 20221202
  19. ZINC OXIDE [Concomitant]
     Active Substance: ZINC OXIDE
     Indication: Rash
     Dosage: 20 PERCENT OINTMENT , PRN
     Route: 061
     Dates: start: 20230317
  20. Remedy Phytoplex Protectant Z Guard [Concomitant]
     Indication: Product used for unknown indication
     Dosage: APPLY TOPICALLY , Q4H, AS NEEDED (17-57 PERCENT)
     Route: 061
     Dates: start: 20221202
  21. PROPIMEX-2 [Concomitant]
     Indication: Propionic acidaemia
     Dosage: 40 GRAM/DAY (30-410 GRAM-KCAL POWDER), AS NEEDED
     Dates: start: 20240103

REACTIONS (3)
  - Hyperammonaemic crisis [Recovering/Resolving]
  - Vomiting [Recovering/Resolving]
  - Diarrhoea [Unknown]

NARRATIVE: CASE EVENT DATE: 20240307
